FAERS Safety Report 13653555 (Version 1)
Quarter: 2017Q2

REPORT INFORMATION
  Report Type: Spontaneous
  Country: US (occurrence: US)
  Receive Date: 20170614
  Receipt Date: 20170614
  Transmission Date: 20170830
  Serious: No
  Sender: FDA-Public Use
  Company Number: US-ROCHE-1232564

PATIENT
  Sex: Male

DRUGS (8)
  1. RENVELA [Concomitant]
     Active Substance: SEVELAMER CARBONATE
  2. ATROPINE. [Concomitant]
     Active Substance: ATROPINE
     Route: 047
  3. LISINOPRIL. [Concomitant]
     Active Substance: LISINOPRIL
  4. XELODA [Suspect]
     Active Substance: CAPECITABINE
     Indication: COLON CANCER
     Dosage: 3 IN THE MORNING AND 2 IN THE EVENING FOR 2 WEEKS ON AND 1 WEEK OFF.
     Route: 048
     Dates: start: 20130419
  5. CARVEDILOL. [Concomitant]
     Active Substance: CARVEDILOL
  6. PANTOPRAZOLE [Concomitant]
     Active Substance: PANTOPRAZOLE
  7. FUROSEMIDE. [Concomitant]
     Active Substance: FUROSEMIDE
  8. SIMVASTATIN. [Concomitant]
     Active Substance: SIMVASTATIN

REACTIONS (4)
  - Visual impairment [Not Recovered/Not Resolved]
  - Photosensitivity reaction [Not Recovered/Not Resolved]
  - Blister [Not Recovered/Not Resolved]
  - Skin discolouration [Not Recovered/Not Resolved]
